FAERS Safety Report 5331671-3 (Version None)
Quarter: 2007Q2

REPORT INFORMATION
  Report Type: 
  Country: None (occurrence: None)
  Receive Date: 20070516
  Receipt Date: 20070508
  Transmission Date: 20071010
  Serious: Yes (Hospitalization, Other)
  Sender: FDA-Public Use
  Company Number: SPV1-2007-02584

PATIENT
  Age: 78 Year
  Sex: Female

DRUGS (5)
  1. AGRYLIN [Suspect]
     Indication: PLATELET COUNT INCREASED
     Dosage: 0.5 MG, ORAL
     Route: 048
     Dates: start: 19800101, end: 20050101
  2. AGRYLIN [Suspect]
     Indication: PLATELET COUNT INCREASED
     Dosage: 0.5 MG, ORAL
     Route: 048
     Dates: start: 20050101, end: 20061005
  3. PRILOSEC [Concomitant]
  4. QUINARETIC (HYDROCHLOROTHIAZIDE, QUINAPRIL HYDROCHLORIDE) [Concomitant]
  5. COSOPT [Concomitant]

REACTIONS (4)
  - COLITIS ULCERATIVE [None]
  - CROHN'S DISEASE [None]
  - RECTAL HAEMORRHAGE [None]
  - WEIGHT DECREASED [None]
